FAERS Safety Report 4779307-4 (Version None)
Quarter: 2005Q3

REPORT INFORMATION
  Report Type: 
  Country: None (occurrence: None)
  Receive Date: 20050914
  Receipt Date: 20050712
  Transmission Date: 20060218
  Serious: Yes (Other)
  Sender: FDA-Public Use
  Company Number: 410663

PATIENT
  Age: 76 Year
  Sex: Male

DRUGS (1)
  1. BONIVA [Suspect]
     Indication: OSTEOPOROSIS
     Dosage: ORAL
     Route: 048
     Dates: start: 20050627, end: 20050627

REACTIONS (4)
  - BURNING SENSATION [None]
  - PRURITUS [None]
  - RASH [None]
  - RASH MACULAR [None]
